FAERS Safety Report 7585644-0 (Version None)
Quarter: 2011Q2

REPORT INFORMATION
  Report Type: 
  Country: None (occurrence: None)
  Receive Date: 20110603
  Receipt Date: 20110318
  Transmission Date: 20111010
  Serious: No
  Sender: FDA-Public Use
  Company Number: 201103021

PATIENT
  Age: 60 Year
  Sex: Female

DRUGS (1)
  1. XIAFLEX [Suspect]
     Indication: DUPUYTREN'S CONTRACTURE
     Dosage: 1 IN 1 D, INTRALESIONAL
     Route: 026
     Dates: start: 20110307, end: 20110307

REACTIONS (6)
  - OEDEMA PERIPHERAL [None]
  - LOCAL REACTION [None]
  - DISCOMFORT [None]
  - BLOOD BLISTER [None]
  - PAIN IN EXTREMITY [None]
  - CONTUSION [None]
